FAERS Safety Report 15851419 (Version 1)
Quarter: 2019Q1

REPORT INFORMATION
  Report Type: Spontaneous
  Country: CA (occurrence: CA)
  Receive Date: 20190122
  Receipt Date: 20190122
  Transmission Date: 20190417
  Serious: Yes (Other)
  Sender: FDA-Public Use
  Company Number: CA-TEVA-2019-CA-1002152

PATIENT
  Age: 7 Decade
  Sex: Female

DRUGS (2)
  1. ANASTROZOLE. [Suspect]
     Active Substance: ANASTROZOLE
     Indication: BREAST CANCER METASTATIC
     Dosage: 1 MILLIGRAM DAILY;
     Route: 065
  2. CLODRONATE [Concomitant]
     Active Substance: CLODRONATE DISODIUM
     Route: 065

REACTIONS (1)
  - Malignant neoplasm progression [Unknown]
